FAERS Safety Report 24180514 (Version 1)
Quarter: 2024Q3

REPORT INFORMATION
  Report Type: Report from Study
  Country: DE (occurrence: DE)
  Receive Date: 20240806
  Receipt Date: 20240806
  Transmission Date: 20241017
  Serious: Yes (Other)
  Sender: JOHNSON AND JOHNSON
  Company Number: DE-JNJFOC-20230421694

PATIENT
  Age: 13 Year
  Sex: Female

DRUGS (3)
  1. REMICADE [Suspect]
     Active Substance: INFLIXIMAB
     Indication: Crohn^s disease
     Route: 041
     Dates: start: 20090702, end: 20100318
  2. REMICADE [Suspect]
     Active Substance: INFLIXIMAB
     Route: 041
     Dates: start: 20100415, end: 20100517
  3. REMICADE [Suspect]
     Active Substance: INFLIXIMAB
     Route: 041
     Dates: start: 20100617, end: 20110825

REACTIONS (8)
  - Haematochezia [Recovered/Resolved]
  - Iron deficiency [Recovered/Resolved]
  - Malnutrition [Recovered/Resolved]
  - Rhinitis [Recovered/Resolved]
  - Selenium deficiency [Recovered/Resolved]
  - Staphylococcal infection [Recovered/Resolved]
  - Abdominal pain upper [Recovered/Resolved]
  - Vitamin D deficiency [Recovered/Resolved]

NARRATIVE: CASE EVENT DATE: 20111031
